FAERS Safety Report 21880431 (Version 1)
Quarter: 2023Q1

REPORT INFORMATION
  Report Type: Report from Study
  Country: IT (occurrence: IT)
  Receive Date: 20230118
  Receipt Date: 20230118
  Transmission Date: 20230418
  Serious: Yes (Other)
  Sender: FDA-Public Use
  Company Number: None

PATIENT
  Sex: Female

DRUGS (2)
  1. CITALOPRAM HYDROBROMIDE [Suspect]
     Active Substance: CITALOPRAM HYDROBROMIDE
     Indication: Drug abuse
     Dosage: 5 DF
     Route: 048
     Dates: start: 20221211, end: 20221211
  2. TRIAZOLAM [Suspect]
     Active Substance: TRIAZOLAM
     Indication: Drug abuse
     Dosage: 10 DF
     Route: 048
     Dates: start: 20221211, end: 20221211

REACTIONS (2)
  - Sopor [Recovering/Resolving]
  - Drug abuse [Recovering/Resolving]

NARRATIVE: CASE EVENT DATE: 20221211
